FAERS Safety Report 8485287-0 (Version None)
Quarter: 2012Q3

REPORT INFORMATION
  Report Type: 
  Country: None (occurrence: None)
  Receive Date: 20120703
  Receipt Date: 20120626
  Transmission Date: 20120928
  Serious: Yes (Hospitalization)
  Sender: FDA-Public Use
  Company Number: US-JNJFOC-20120602894

PATIENT
  Sex: Female
  Weight: 52.6 kg

DRUGS (5)
  1. METHOTREXATE [Concomitant]
  2. MESALAMINE [Concomitant]
     Route: 048
  3. REMICADE [Suspect]
     Indication: CROHN'S DISEASE
     Route: 042
     Dates: start: 20120610
  4. REMICADE [Suspect]
     Route: 042
     Dates: start: 20071106
  5. CIMZIA [Concomitant]
     Dates: start: 20090420

REACTIONS (1)
  - CROHN'S DISEASE [None]
